FAERS Safety Report 16485568 (Version 1)
Quarter: 2019Q2

REPORT INFORMATION
  Report Type: Spontaneous
  Country: US (occurrence: US)
  Receive Date: 20190515
  Receipt Date: 20190515
  Transmission Date: 20190711
  Serious: No
  Sender: FDA-Public Use
  Company Number: None

PATIENT
  Age: 78 Year
  Sex: Male

DRUGS (1)
  1. WARFARIN [Suspect]
     Active Substance: WARFARIN
     Indication: ATRIAL FIBRILLATION
     Route: 048
     Dates: start: 20160801, end: 20180801

REACTIONS (4)
  - Polyp [None]
  - Haematochezia [None]
  - Colitis [None]
  - Gastric haemorrhage [None]

NARRATIVE: CASE EVENT DATE: 20180820
